FAERS Safety Report 5143149-0 (Version None)
Quarter: 2006Q4

REPORT INFORMATION
  Report Type: 
  Country: None (occurrence: None)
  Receive Date: 20061103
  Receipt Date: 20061027
  Transmission Date: 20070319
  Serious: Yes (Hospitalization)
  Sender: FDA-Public Use
  Company Number: FR-AVENTIS-200613837FR

PATIENT
  Age: 79 Year
  Sex: Female

DRUGS (13)
  1. LASILIX                            /00032601/ [Suspect]
     Indication: DRUG USE FOR UNKNOWN INDICATION
     Route: 048
  2. INIPOMP                            /01263201/ [Suspect]
     Indication: DRUG USE FOR UNKNOWN INDICATION
     Route: 048
  3. MICARDIS HCT [Suspect]
     Indication: DRUG USE FOR UNKNOWN INDICATION
     Route: 048
  4. GLUCOPHAGE [Concomitant]
     Route: 048
  5. LEVOTHYROXINE SODIUM [Concomitant]
     Route: 048
  6. LEXOMIL [Concomitant]
     Route: 048
  7. BETASERC [Concomitant]
     Route: 048
  8. SEROPRAM [Concomitant]
     Route: 048
  9. CONTRAMAL [Concomitant]
     Route: 048
  10. PLAVIX [Concomitant]
     Route: 048
  11. STILNOX                            /00914901/ [Concomitant]
     Route: 048
  12. RISPERDAL [Concomitant]
     Route: 048
  13. LANTUS [Concomitant]
     Route: 058

REACTIONS (3)
  - DRUG INTERACTION [None]
  - HYPOGLYCAEMIA [None]
  - RENAL FAILURE [None]
